FAERS Safety Report 6924105-6 (Version None)
Quarter: 2010Q3

REPORT INFORMATION
  Report Type: 
  Country: None (occurrence: None)
  Receive Date: 20100812
  Receipt Date: 20100812
  Transmission Date: 20110219
  Serious: Yes (Hospitalization)
  Sender: FDA-Public Use
  Company Number: None

PATIENT
  Sex: Male
  Weight: 91 kg

DRUGS (2)
  1. TEMSIROLIMUS 25 MG IV WYETH PHARMACEUTICALS [Suspect]
     Indication: PROSTATE CANCER METASTATIC
     Dosage: 25 MG WEKLY IV
     Route: 042
     Dates: start: 20100720, end: 20100727
  2. AVASTIN [Suspect]
     Dosage: 10 MG/KG BI-WEEKLY IV
     Route: 042
     Dates: start: 20100720, end: 20100727

REACTIONS (7)
  - BODY TEMPERATURE INCREASED [None]
  - DECREASED APPETITE [None]
  - FATIGUE [None]
  - MALAISE [None]
  - NAUSEA [None]
  - VOMITING [None]
  - WEIGHT DECREASED [None]
